FAERS Safety Report 7701313-8 (Version None)
Quarter: 2011Q3

REPORT INFORMATION
  Report Type: 
  Country: None (occurrence: None)
  Receive Date: 20110817
  Receipt Date: 20110810
  Transmission Date: 20111222
  Serious: Yes (Death, Hospitalization)
  Sender: FDA-Public Use
  Company Number: TRP_07885_2011

PATIENT
  Age: 33 Year
  Sex: Male

DRUGS (8)
  1. DEXAMETHASONE [Concomitant]
  2. EMTRICITABINE [Concomitant]
  3. RITONAVIR [Concomitant]
  4. AMPHOTERICIN B [Suspect]
     Indication: CRYPTOCOCCOSIS
     Dosage: (4 MG/KG QD)
  5. FLUCONAZOLE [Suspect]
     Indication: CRYPTOCOCCOSIS
     Dosage: (400 MG QD)
  6. LOPINAVIR [Concomitant]
  7. FLUCYTOSINE [Suspect]
     Indication: CRYPTOCOCCOSIS
     Dosage: (150 MG/KG QD)
  8. TENOFOVIR DISOPROXIL FUMARATE [Concomitant]

REACTIONS (7)
  - VOMITING [None]
  - CEREBRAL FUNGAL INFECTION [None]
  - PARTIAL SEIZURES [None]
  - LETHARGY [None]
  - IMMUNE RECONSTITUTION SYNDROME [None]
  - ENCEPHALITIS [None]
  - HEADACHE [None]
